FAERS Safety Report 6700410-3 (Version None)
Quarter: 2010Q2

REPORT INFORMATION
  Report Type: 
  Country: None (occurrence: None)
  Receive Date: 20100428
  Receipt Date: 20100421
  Transmission Date: 20101027
  Serious: Yes (Hospitalization)
  Sender: FDA-Public Use
  Company Number: JP-EISAI INC.-E3810-03752-SPO-JP

PATIENT
  Age: 75 Year
  Sex: Female

DRUGS (7)
  1. PARIET (RABEPRAZOLE) [Suspect]
     Route: 048
  2. PAXIL [Concomitant]
  3. MYSLEE [Concomitant]
  4. ZYPREXA [Concomitant]
  5. DOGMATYL [Concomitant]
  6. MEILAX [Concomitant]
  7. BONALON [Concomitant]

REACTIONS (1)
  - LUNG DISORDER [None]
